FAERS Safety Report 8222294-7 (Version None)
Quarter: 2012Q1

REPORT INFORMATION
  Report Type: 
  Country: None (occurrence: None)
  Receive Date: 20120320
  Receipt Date: 20120314
  Transmission Date: 20120608
  Serious: Yes (Hospitalization)
  Sender: FDA-Public Use
  Company Number: DE-GLAXOSMITHKLINE-B0786053A

PATIENT
  Sex: Female
  Weight: 63 kg

DRUGS (6)
  1. BLINDED TRIAL MEDICATION [Suspect]
     Indication: OVARIAN CANCER
     Dosage: 800MG CYCLIC
     Route: 048
     Dates: start: 20120218
  2. TOPOTECAN [Suspect]
     Indication: OVARIAN CANCER
     Dosage: 1.25MG CYCLIC
     Route: 042
     Dates: start: 20120213
  3. UNSPECIFIED MEDICATION [Concomitant]
     Indication: HYPERTENSION
     Dosage: 16MG PER DAY
     Route: 048
     Dates: start: 19800102
  4. ZOPLICONE [Concomitant]
     Indication: SLEEP DISORDER
     Dosage: 7.5MG PER DAY
     Route: 048
     Dates: start: 20110701
  5. AMLODIPINE [Concomitant]
     Indication: HYPERTENSION
     Route: 048
     Dates: start: 19800102
  6. ATACAND HCT [Concomitant]
     Indication: HYPERTENSION
     Route: 048
     Dates: start: 19800102

REACTIONS (1)
  - SYNCOPE [None]
